FAERS Safety Report 14390756 (Version 1)
Quarter: 2018Q1

REPORT INFORMATION
  Report Type: Report from Study
  Country: None (occurrence: US)
  Receive Date: 20180116
  Receipt Date: 20180116
  Transmission Date: 20180509
  Serious: Yes (Other)
  Sender: FDA-Public Use
  Company Number: US-ABBVIE-18K-163-2220701-00

PATIENT
  Sex: Female

DRUGS (1)
  1. HUMIRA [Suspect]
     Active Substance: ADALIMUMAB
     Indication: RHEUMATOID ARTHRITIS
     Route: 058

REACTIONS (8)
  - Sinus disorder [Unknown]
  - Musculoskeletal pain [Unknown]
  - Back pain [Unknown]
  - Nasopharyngitis [Unknown]
  - Hernia [Unknown]
  - Musculoskeletal disorder [Unknown]
  - Procedural complication [Unknown]
  - Sciatica [Unknown]
